FAERS Safety Report 25605906 (Version 1)
Quarter: 2025Q3

REPORT INFORMATION
  Report Type: Report from Study
  Country: US (occurrence: US)
  Receive Date: 20250725
  Receipt Date: 20250725
  Transmission Date: 20251021
  Serious: Yes (Hospitalization, Other)
  Sender: GILEAD
  Company Number: US-GILEAD-2025-0721857

PATIENT
  Sex: Male

DRUGS (1)
  1. SOFOSBUVIR\VELPATASVIR [Suspect]
     Active Substance: SOFOSBUVIR\VELPATASVIR
     Indication: Chronic hepatitis C
     Dosage: 400/100MG TAKE 1 TABLET BY MOUTH ONCE DAILY
     Route: 048
     Dates: start: 20250611

REACTIONS (1)
  - Gastrointestinal disorder [Not Recovered/Not Resolved]
